FAERS Safety Report 11378813 (Version 2)
Quarter: 2015Q3

REPORT INFORMATION
  Report Type: Spontaneous
  Country: US (occurrence: US)
  Receive Date: 20150811
  Receipt Date: 20150903
  Transmission Date: 20151125
  Serious: No
  Sender: FDA-Public Use
  Company Number: US-ELI_LILLY_AND_COMPANY-US200907004399

PATIENT
  Sex: Male

DRUGS (3)
  1. LANTUS [Concomitant]
     Active Substance: INSULIN GLARGINE
  2. HUMALOG [Suspect]
     Active Substance: INSULIN LISPRO
     Dosage: 40 U, UNK
  3. HUMULIN R [Suspect]
     Active Substance: INSULIN HUMAN
     Dosage: 8 U, UNK
     Dates: start: 20090509, end: 20090520

REACTIONS (7)
  - Blood glucose decreased [Unknown]
  - Impaired gastric emptying [Not Recovered/Not Resolved]
  - Weight increased [Not Recovered/Not Resolved]
  - Hyperhidrosis [Unknown]
  - Blood glucose increased [Unknown]
  - Dyspepsia [Not Recovered/Not Resolved]
  - Palpitations [Unknown]

NARRATIVE: CASE EVENT DATE: 1999
